FAERS Safety Report 12648419 (Version 1)
Quarter: 2016Q3

REPORT INFORMATION
  Report Type: Report from Study
  Country: None (occurrence: IT)
  Receive Date: 20160812
  Receipt Date: 20160812
  Transmission Date: 20161109
  Serious: Yes (Other)
  Sender: FDA-Public Use
  Company Number: IT-BIOGEN-2014BI095020

PATIENT
  Age: 38 Year
  Sex: Male
  Weight: 76 kg

DRUGS (1)
  1. DACLIZUMAB HYP [Suspect]
     Active Substance: DACLIZUMAB
     Indication: MULTIPLE SCLEROSIS
     Route: 058
     Dates: start: 20130923, end: 20140728

REACTIONS (2)
  - Lymphadenitis [Recovered/Resolved]
  - Lymphoid tissue hyperplasia [Recovered/Resolved]

NARRATIVE: CASE EVENT DATE: 20140909
